FAERS Safety Report 16467209 (Version 1)
Quarter: 2019Q2

REPORT INFORMATION
  Report Type: Spontaneous
  Country: CN (occurrence: CN)
  Receive Date: 20190624
  Receipt Date: 20190624
  Transmission Date: 20190711
  Serious: Yes (Other)
  Sender: FDA-Public Use
  Company Number: CN-ROCHE-2335575

PATIENT
  Age: 57 Year
  Sex: Male

DRUGS (11)
  1. TERBUTALINE SULPHATE [Concomitant]
     Active Substance: TERBUTALINE SULFATE
     Indication: MUSCLE SPASMS
     Route: 065
     Dates: start: 20180101
  2. DOXOFYLLINE [Concomitant]
     Active Substance: DOXOFYLLINE
     Indication: OFF LABEL USE
  3. TERBUTALINE SULPHATE [Concomitant]
     Active Substance: TERBUTALINE SULFATE
     Indication: OFF LABEL USE
  4. TERBUTALINE SULPHATE [Concomitant]
     Active Substance: TERBUTALINE SULFATE
     Indication: ASTHMA
  5. IPRATROPIUM BROMIDE. [Concomitant]
     Active Substance: IPRATROPIUM BROMIDE
     Indication: OFF LABEL USE
  6. OSELTAMIVIR [Suspect]
     Active Substance: OSELTAMIVIR
     Indication: PNEUMONIA
     Route: 065
     Dates: start: 20180101
  7. OSELTAMIVIR [Suspect]
     Active Substance: OSELTAMIVIR
     Indication: OFF LABEL USE
  8. DOXOFYLLINE [Concomitant]
     Active Substance: DOXOFYLLINE
     Indication: MUSCLE SPASMS
     Route: 065
     Dates: start: 20180101
  9. IPRATROPIUM BROMIDE. [Concomitant]
     Active Substance: IPRATROPIUM BROMIDE
     Indication: MUSCLE SPASMS
     Route: 065
     Dates: start: 20180101
  10. DOXOFYLLINE [Concomitant]
     Active Substance: DOXOFYLLINE
     Indication: ASTHMA
  11. IPRATROPIUM BROMIDE. [Concomitant]
     Active Substance: IPRATROPIUM BROMIDE
     Indication: ASTHMA

REACTIONS (11)
  - Cough [Unknown]
  - Oedema peripheral [Unknown]
  - Intentional product use issue [Unknown]
  - Hyperhidrosis [Unknown]
  - Off label use [Unknown]
  - Hypertensive crisis [Unknown]
  - Cardiac failure acute [Unknown]
  - Asthma [Unknown]
  - Acute respiratory failure [Unknown]
  - Haemoptysis [Unknown]
  - Sputum abnormal [Unknown]
